FAERS Safety Report 26218709 (Version 1)
Quarter: 2025Q4

REPORT INFORMATION
  Report Type: Spontaneous
  Country: CN (occurrence: CN)
  Receive Date: 20251231
  Receipt Date: 20251231
  Transmission Date: 20260118
  Serious: Yes (Other)
  Sender: MERCK SHARP & DOHME LLC
  Company Number: CN-009507513-2365133

PATIENT
  Age: 64 Year
  Sex: Male
  Weight: 62 kg

DRUGS (2)
  1. INVANZ [Suspect]
     Active Substance: ERTAPENEM SODIUM
     Indication: Anti-infective therapy
     Route: 041
     Dates: start: 20251120, end: 20251126
  2. SODIUM CHLORIDE [Concomitant]
     Active Substance: SODIUM CHLORIDE
     Indication: Medication dilution
     Dosage: 100 ML: 0.9 G, ONCE A DAY
     Route: 041
     Dates: start: 20251120, end: 20251126

REACTIONS (2)
  - Loss of consciousness [Recovering/Resolving]
  - Muscle twitching [Recovered/Resolved]

NARRATIVE: CASE EVENT DATE: 20251126
